FAERS Safety Report 19999631 (Version 1)
Quarter: 2021Q4

REPORT INFORMATION
  Report Type: Spontaneous
  Country: FR (occurrence: FR)
  Receive Date: 20211027
  Receipt Date: 20211027
  Transmission Date: 20220303
  Serious: Yes (Other)
  Sender: FDA-Public Use
  Company Number: None

PATIENT
  Age: 40 Year
  Sex: Female

DRUGS (6)
  1. SIKLOS [Suspect]
     Active Substance: HYDROXYUREA
     Route: 048
     Dates: start: 20150515, end: 20190207
  2. SIKLOS [Suspect]
     Active Substance: HYDROXYUREA
     Dosage: 1500 MG/D 6D/7, 2000 MG ON SUNDAYS
     Route: 048
     Dates: end: 20210615
  3. EXJADE [Suspect]
     Active Substance: DEFERASIROX
     Route: 048
     Dates: start: 2009, end: 20210519
  4. DESFERAL [Suspect]
     Active Substance: DEFEROXAMINE MESYLATE
     Dosage: 2000 MG X3/W
     Route: 058
     Dates: start: 2009, end: 20210519
  5. COMIRNATY [Concomitant]
     Active Substance: TOZINAMERAN
     Route: 065
     Dates: start: 20210527, end: 20210527
  6. CALCIUM\CHOLECALCIFEROL [Concomitant]
     Active Substance: CALCIUM\CHOLECALCIFEROL
     Dosage: CACIT D3 50/DAY
     Route: 065

REACTIONS (2)
  - Abortion spontaneous [Recovered/Resolved]
  - Maternal exposure during pregnancy [Recovered/Resolved]

NARRATIVE: CASE EVENT DATE: 20210101
